FAERS Safety Report 6913673-6 (Version None)
Quarter: 2010Q3

REPORT INFORMATION
  Report Type: 
  Country: None (occurrence: None)
  Receive Date: 20100803
  Receipt Date: 20100727
  Transmission Date: 20110219
  Serious: Yes (Hospitalization, Other)
  Sender: FDA-Public Use
  Company Number: 015885

PATIENT
  Sex: Male

DRUGS (8)
  1. KEPPRA [Suspect]
     Indication: EPILEPSY
     Dosage: (250 MG BID)
     Dates: start: 20100528, end: 20100607
  2. LOVENOX [Suspect]
     Indication: PROPHYLAXIS
     Dosage: (SUBCUTANEOUS), (SUBCUTANEOUS), (20 MG, DIALYSIS EVERY TWO DAYS, WITH INJECTION OF 20MG LOVENOX IN T
     Route: 058
     Dates: start: 20100521, end: 20100607
  3. LOVENOX [Suspect]
     Indication: PROPHYLAXIS
     Dosage: (SUBCUTANEOUS), (SUBCUTANEOUS), (20 MG, DIALYSIS EVERY TWO DAYS, WITH INJECTION OF 20MG LOVENOX IN T
     Route: 058
     Dates: start: 20100608
  4. HUMALOG [Suspect]
     Indication: TYPE 1 DIABETES MELLITUS
     Dosage: (AS PER PROTOCOL SUBCUTANEOUS)
     Route: 058
     Dates: start: 20100528, end: 20100607
  5. CORTANCYL [Concomitant]
  6. CALCIUM [Concomitant]
  7. VITAMINE D VOOR SENIOREN [Concomitant]
  8. DEPAKENE [Concomitant]

REACTIONS (9)
  - DEVICE RELATED SEPSIS [None]
  - DIARRHOEA [None]
  - EOSINOPHILIA [None]
  - PANCREATITIS BACTERIAL [None]
  - PERIPANCREATIC FLUID COLLECTION [None]
  - RENAL FAILURE CHRONIC [None]
  - RHINITIS ALLERGIC [None]
  - SEPTIC SHOCK [None]
  - STAPHYLOCOCCAL INFECTION [None]
